FAERS Safety Report 22265114 (Version 1)
Quarter: 2023Q2

REPORT INFORMATION
  Report Type: Spontaneous
  Country: CA (occurrence: None)
  Receive Date: 20230428
  Receipt Date: 20230428
  Transmission Date: 20230722
  Serious: Yes (Disabling, Other)
  Sender: FDA-Public Use
  Company Number: CA-Merck Healthcare KGaA-9398110

PATIENT
  Age: 51 Year
  Sex: Female

DRUGS (30)
  1. SOMATROPIN [Suspect]
     Active Substance: SOMATROPIN
     Indication: Growth hormone deficiency
     Dosage: THERAPY DURATION -128.0 , PRE-FILLED PEN
     Route: 058
  2. SOMATROPIN [Suspect]
     Active Substance: SOMATROPIN
     Dosage: PRE-FILLED PEN
     Route: 058
  3. SOMATROPIN [Suspect]
     Active Substance: SOMATROPIN
     Dosage: PRE-FILLED PEN
     Route: 058
  4. SOMATROPIN [Suspect]
     Active Substance: SOMATROPIN
     Dosage: PRE-FILLED PEN
     Route: 058
  5. SOMATROPIN [Suspect]
     Active Substance: SOMATROPIN
     Dosage: PRE-FILLED PEN
     Route: 058
  6. SOMATROPIN [Suspect]
     Active Substance: SOMATROPIN
     Route: 058
  7. SOMATROPIN [Suspect]
     Active Substance: SOMATROPIN
     Dosage: PRE-FILLED PEN
     Route: 058
  8. SOMATROPIN [Suspect]
     Active Substance: SOMATROPIN
     Dosage: PRE-FILLED PEN
     Route: 058
  9. SOMATROPIN [Suspect]
     Active Substance: SOMATROPIN
     Dosage: PRE-FILLED PEN
     Route: 058
  10. CORTEF [Concomitant]
     Active Substance: HYDROCORTISONE
     Indication: Pyrexia
     Route: 048
  11. CORTEF [Concomitant]
     Active Substance: HYDROCORTISONE
     Indication: Pain
     Route: 048
  12. CORTEF [Concomitant]
     Active Substance: HYDROCORTISONE
     Indication: Malaise
     Route: 048
  13. CORTEF [Concomitant]
     Active Substance: HYDROCORTISONE
     Route: 048
  14. CORTEF [Concomitant]
     Active Substance: HYDROCORTISONE
     Route: 048
  15. CORTEF [Concomitant]
     Active Substance: HYDROCORTISONE
     Route: 048
  16. CORTEF [Concomitant]
     Active Substance: HYDROCORTISONE
     Route: 048
  17. DESOXIMETASONE [Concomitant]
     Active Substance: DESOXIMETASONE
     Indication: Product used for unknown indication
     Route: 065
  18. ERGOCALCIFEROL [Concomitant]
     Active Substance: ERGOCALCIFEROL
     Indication: Product used for unknown indication
     Dosage: 1 EVERY 1 WEEK
  19. RIVOTRIL [Concomitant]
     Active Substance: CLONAZEPAM
     Indication: Product used for unknown indication
     Route: 048
  20. RIVOTRIL [Concomitant]
     Active Substance: CLONAZEPAM
     Route: 048
  21. ROSUVASTATIN [Concomitant]
     Active Substance: ROSUVASTATIN
     Indication: Product used for unknown indication
     Route: 048
  22. ROSUVASTATIN [Concomitant]
     Active Substance: ROSUVASTATIN
     Route: 065
  23. SYNTHROID [Concomitant]
     Active Substance: LEVOTHYROXINE SODIUM
     Indication: Product used for unknown indication
  24. SYNTHROID [Concomitant]
     Active Substance: LEVOTHYROXINE SODIUM
     Dosage: 1 EVERY 1 DAY
     Route: 048
  25. SYNTHROID [Concomitant]
     Active Substance: LEVOTHYROXINE SODIUM
     Route: 048
  26. SYNTHROID [Concomitant]
     Active Substance: LEVOTHYROXINE SODIUM
     Route: 048
  27. SYNTHROID [Concomitant]
     Active Substance: LEVOTHYROXINE SODIUM
     Route: 048
  28. PREDNISONE [Concomitant]
     Active Substance: PREDNISONE
     Indication: Product used for unknown indication
  29. PREDNISONE [Concomitant]
     Active Substance: PREDNISONE
  30. PREDNISONE [Concomitant]
     Active Substance: PREDNISONE

REACTIONS (27)
  - Drug intolerance [Not Recovered/Not Resolved]
  - Blood pressure diastolic decreased [Not Recovered/Not Resolved]
  - Contusion [Not Recovered/Not Resolved]
  - Dizziness [Not Recovered/Not Resolved]
  - Eye pain [Not Recovered/Not Resolved]
  - Fatigue [Not Recovered/Not Resolved]
  - Malaise [Not Recovered/Not Resolved]
  - Peripheral swelling [Not Recovered/Not Resolved]
  - Palpitations [Not Recovered/Not Resolved]
  - Stress [Not Recovered/Not Resolved]
  - Thyroid disorder [Not Recovered/Not Resolved]
  - Loss of personal independence in daily activities [Not Recovered/Not Resolved]
  - Nausea [Not Recovered/Not Resolved]
  - Inflammation [Not Recovered/Not Resolved]
  - Insomnia [Not Recovered/Not Resolved]
  - Breast discomfort [Not Recovered/Not Resolved]
  - Breast pain [Not Recovered/Not Resolved]
  - Hormone level abnormal [Not Recovered/Not Resolved]
  - Breast swelling [Not Recovered/Not Resolved]
  - Menopause [Not Recovered/Not Resolved]
  - Weight fluctuation [Not Recovered/Not Resolved]
  - Weight increased [Not Recovered/Not Resolved]
  - Fluid retention [Not Recovered/Not Resolved]
  - Headache [Not Recovered/Not Resolved]
  - Off label use [Not Recovered/Not Resolved]
  - Product dose omission issue [Not Recovered/Not Resolved]
  - Drug ineffective [Not Recovered/Not Resolved]
